FAERS Safety Report 12875662 (Version 1)
Quarter: 2016Q4

REPORT INFORMATION
  Report Type: Spontaneous
  Country: NL (occurrence: NL)
  Receive Date: 20161024
  Receipt Date: 20161024
  Transmission Date: 20170207
  Serious: Yes (Other)
  Sender: FDA-Public Use
  Company Number: NL-AUROBINDO-AUR-APL-2016-13013

PATIENT
  Age: 32 Year
  Sex: Female

DRUGS (1)
  1. PREDNISONE. [Suspect]
     Active Substance: PREDNISONE
     Indication: SYSTEMIC LUPUS ERYTHEMATOSUS
     Dosage: 10 MG, UNK
     Route: 065

REACTIONS (7)
  - Lethargy [Unknown]
  - Pyrexia [Unknown]
  - Night sweats [Unknown]
  - Ovarian disorder [Unknown]
  - Histoplasmosis disseminated [Unknown]
  - Weight decreased [Unknown]
  - Menstruation irregular [Unknown]
